FAERS Safety Report 17580542 (Version 8)
Quarter: 2020Q3

REPORT INFORMATION
  Report Type: Report from Study
  Country: US (occurrence: US)
  Receive Date: 20200325
  Receipt Date: 20200926
  Transmission Date: 20201102
  Serious: Yes (Other)
  Sender: FDA-Public Use
  Company Number: NVSC2020US083705

PATIENT
  Age: 49 Year
  Sex: Female

DRUGS (2)
  1. ENTRESTO [Suspect]
     Active Substance: SACUBITRIL\VALSARTAN
     Indication: PRODUCT USED FOR UNKNOWN INDICATION
     Dosage: 50 MG, BID (24/26 MG, BID)
     Route: 048
     Dates: start: 20200313
  2. ELIQUIS [Concomitant]
     Active Substance: APIXABAN
     Indication: PRODUCT USED FOR UNKNOWN INDICATION
     Dosage: UNK UNK, UNKNOWN
     Route: 065

REACTIONS (14)
  - Medical device site bruise [Unknown]
  - Abdominal pain upper [Unknown]
  - Seasonal allergy [Unknown]
  - Dizziness [Recovering/Resolving]
  - Fatigue [Not Recovered/Not Resolved]
  - Asthenia [Not Recovered/Not Resolved]
  - Jugular vein thrombosis [Unknown]
  - Sneezing [Unknown]
  - Gene mutation identification test positive [Unknown]
  - Breast cancer [Unknown]
  - Chest pain [Unknown]
  - Weight decreased [Unknown]
  - Cough [Unknown]
  - Goitre [Unknown]

NARRATIVE: CASE EVENT DATE: 202003
